FAERS Safety Report 20010874 (Version 4)
Quarter: 2022Q4

REPORT INFORMATION
  Report Type: Other
  Country: JP (occurrence: JP)
  Receive Date: 20211029
  Receipt Date: 20221013
  Transmission Date: 20230113
  Serious: Yes (Other)
  Sender: FDA-Public Use
  Company Number: JP-CHUGAI-2021023782

PATIENT
  Age: 84 Year
  Sex: Male
  Weight: 52 kg

DRUGS (6)
  1. POLATUZUMAB VEDOTIN [Suspect]
     Active Substance: POLATUZUMAB VEDOTIN
     Indication: Diffuse large B-cell lymphoma
     Route: 041
     Dates: start: 20210811, end: 20210811
  2. POLATUZUMAB VEDOTIN [Suspect]
     Active Substance: POLATUZUMAB VEDOTIN
     Route: 041
     Dates: start: 20210906, end: 20210906
  3. RITUXIMAB [Suspect]
     Active Substance: RITUXIMAB
     Indication: Diffuse large B-cell lymphoma
     Dosage: UNK
     Route: 041
     Dates: start: 20210813, end: 20210907
  4. BENDAMUSTINE HYDROCHLORIDE [Suspect]
     Active Substance: BENDAMUSTINE HYDROCHLORIDE
     Indication: Diffuse large B-cell lymphoma
     Dosage: UNK
     Route: 041
     Dates: start: 20210811, end: 20210907
  5. SULFAMETHOXAZOLE\TRIMETHOPRIM [Concomitant]
     Active Substance: SULFAMETHOXAZOLE\TRIMETHOPRIM
     Indication: Infection prophylaxis
     Dosage: UNK
     Route: 065
     Dates: end: 20211018
  6. ZOVIRAX [Concomitant]
     Active Substance: ACYCLOVIR
     Indication: Infection prophylaxis
     Dosage: UNK
     Route: 065
     Dates: start: 20210812, end: 20211018

REACTIONS (13)
  - Neutrophil count abnormal [Recovered/Resolved]
  - Platelet count abnormal [Recovered/Resolved]
  - Hypoxia [Recovered/Resolved]
  - Nephrogenic anaemia [Unknown]
  - Cardiac failure [Unknown]
  - Lymphocyte count decreased [Recovered/Resolved]
  - Dementia [Unknown]
  - Decreased activity [Unknown]
  - Infection [Unknown]
  - Blood creatinine abnormal [Recovered/Resolved]
  - Pyrexia [Recovered/Resolved]
  - Haemoglobin abnormal [Not Recovered/Not Resolved]
  - Eastern Cooperative Oncology Group performance status worsened [Not Recovered/Not Resolved]

NARRATIVE: CASE EVENT DATE: 20210813
